FAERS Safety Report 8945835 (Version 2)
Quarter: 2013Q1

REPORT INFORMATION
  Report Type: Spontaneous
  Country: US (occurrence: US)
  Receive Date: 20121204
  Receipt Date: 20130102
  Transmission Date: 20140127
  Serious: No
  Sender: FDA-Public Use
  Company Number: US-AMGEN-USASP2012073251

PATIENT
  Age: 53 Year
  Sex: Female
  Weight: 102.95 kg

DRUGS (18)
  1. ENBREL [Suspect]
     Indication: RHEUMATOID ARTHRITIS
     Dosage: 50 MG, QWK
     Dates: start: 20121101
  2. IBUPROFEN [Concomitant]
     Indication: RHEUMATOID ARTHRITIS
     Dosage: 800 MG, TID
  3. METFORMIN [Concomitant]
     Dosage: 1000 MG, BID
  4. NORCO [Concomitant]
     Dosage: 325 MG-5 MG 1 TAB THREE TIMES A DAY
  5. NITROQUICK [Concomitant]
     Dosage: 1 TAB AS NEEDED
  6. ZOFRON                             /00955301/ [Concomitant]
     Dosage: 8 MG, AS NEEDED
  7. NEURONTIN [Concomitant]
     Dosage: 300 MG, 3 CAPSULE EVERY MORNING AND AT NOON, 4 CAPS AT BED TIME
  8. CYMBALTA [Concomitant]
     Dosage: 60 MG, ONE TIME IN A DAY
  9. CYMBALTA [Concomitant]
     Dosage: 30 MG,ONE CAPSULE AT NOON
  10. CLONAZEPAM [Concomitant]
     Dosage: 2 MG, QD AT BED TIME
  11. CLONAZEPAM [Concomitant]
     Dosage: 1 MG, ONE TABLET IN NOON
  12. PATADAY [Concomitant]
     Dosage: 0.2% SOLUTION 1 GTT AS NEEDED
  13. TEGRETOL XR [Concomitant]
     Dosage: 200 MG,ONE CAPSULE EVERYMORNING AND 2 CAPSULE AT BED TIME.
  14. NEXIUM                             /01479302/ [Concomitant]
     Dosage: 40 MG,ONE TABLET THREE TIMES A DAY
  15. GEODON                             /01487002/ [Concomitant]
     Dosage: 80 MG, 2 CAPSULE ANCE A DAY
  16. ISOSORBIDE MONONITRATE [Concomitant]
     Dosage: 120 MG, ONE TABLET 2 TIMES A DAY
  17. GLIPIZIDE [Concomitant]
     Dosage: 10 MG, ONE TABLET ONCE A DAY
  18. SINGULAIR [Concomitant]
     Dosage: 10 MG, QD AT BED TIME

REACTIONS (7)
  - Musculoskeletal stiffness [Not Recovered/Not Resolved]
  - Joint stiffness [Not Recovered/Not Resolved]
  - Back pain [Not Recovered/Not Resolved]
  - Arthralgia [Not Recovered/Not Resolved]
  - Spinal osteoarthritis [Unknown]
  - Bursitis [Unknown]
  - Injection site reaction [Unknown]
